FAERS Safety Report 20800692 (Version 2)
Quarter: 2022Q4

REPORT INFORMATION
  Report Type: Spontaneous
  Country: US (occurrence: US)
  Receive Date: 20220509
  Receipt Date: 20221012
  Transmission Date: 20230112
  Serious: No
  Sender: FDA-Public Use
  Company Number: US-HBP-2022US026257

PATIENT
  Age: 74 Year
  Sex: Male

DRUGS (6)
  1. MECHLORETHAMINE [Suspect]
     Active Substance: MECHLORETHAMINE
     Indication: Cutaneous T-cell lymphoma
     Dosage: UNK, QD
     Route: 061
  2. MECHLORETHAMINE [Suspect]
     Active Substance: MECHLORETHAMINE
     Indication: Palmoplantar keratoderma
  3. MECHLORETHAMINE [Suspect]
     Active Substance: MECHLORETHAMINE
     Indication: Psoriasis
  4. CLOBETASOL [Concomitant]
     Active Substance: CLOBETASOL
     Dosage: UNK, UNKNOWN
  5. UREA [Concomitant]
     Active Substance: UREA
     Dosage: UNK, UNKNOWN
  6. APREMILAST [Concomitant]
     Active Substance: APREMILAST
     Dosage: UNK UNK, UNKNOWN

REACTIONS (3)
  - Drug effective for unapproved indication [Unknown]
  - Off label use [Unknown]
  - Condition aggravated [Unknown]
